FAERS Safety Report 22056193 (Version 1)
Quarter: 2023Q1

REPORT INFORMATION
  Report Type: Spontaneous
  Country: US (occurrence: US)
  Receive Date: 20230302
  Receipt Date: 20230302
  Transmission Date: 20230417
  Serious: No
  Sender: FDA-Public Use
  Company Number: US-BRAINTREE LABORATORIES, INC.-2022BTE00976

PATIENT
  Age: 68 Year
  Sex: Female
  Weight: 72.562 kg

DRUGS (12)
  1. SUTAB [Suspect]
     Active Substance: MAGNESIUM SULFATE\POTASSIUM CHLORIDE\SODIUM SULFATE
     Indication: Colonoscopy
     Dosage: 2 X 12 TABLETS, 1X
     Route: 048
     Dates: start: 20221122, end: 20221122
  2. CARVEDILOL [Concomitant]
     Active Substance: CARVEDILOL
     Dosage: UNK, 2X/DAY
  3. LISINOPRIL [Concomitant]
     Active Substance: LISINOPRIL
  4. FOLIC ACID [Concomitant]
     Active Substance: FOLIC ACID
  5. LASIX [Concomitant]
     Active Substance: FUROSEMIDE
  6. VITAMIN D2 [Concomitant]
     Active Substance: ERGOCALCIFEROL
     Dosage: UNK, 1X/WEEK
  7. IRON [Concomitant]
     Active Substance: IRON
  8. CELEXA [Concomitant]
     Active Substance: CITALOPRAM HYDROBROMIDE
  9. HYDROXYZINE [Concomitant]
     Active Substance: HYDROXYZINE HYDROCHLORIDE
  10. ATORVASTATIN [Concomitant]
     Active Substance: ATORVASTATIN
  11. NORCO [Concomitant]
     Active Substance: ACETAMINOPHEN\HYDROCODONE BITARTRATE
     Dosage: 1 DOSAGE UNIT, EVERY 4 HOURS AS NEEDED
  12. ASPIRIN [Concomitant]
     Active Substance: ASPIRIN
     Dosage: UNK
     Dates: end: 20221115

REACTIONS (3)
  - Asthenia [Not Recovered/Not Resolved]
  - Nausea [Recovering/Resolving]
  - Abdominal pain upper [Not Recovered/Not Resolved]

NARRATIVE: CASE EVENT DATE: 20221122
